FAERS Safety Report 17028564 (Version 2)
Quarter: 2019Q4

REPORT INFORMATION
  Report Type: Report from Study
  Country: None (occurrence: US)
  Receive Date: 20191113
  Receipt Date: 20191121
  Transmission Date: 20200122
  Serious: Yes (Hospitalization, Other)
  Sender: FDA-Public Use
  Company Number: US-ABBVIE-19K-163-2998724-00

PATIENT
  Sex: Male

DRUGS (2)
  1. IBRUTINIB [Suspect]
     Active Substance: IBRUTINIB
     Indication: PRODUCT USED FOR UNKNOWN INDICATION
     Route: 048
  2. VENCLEXTA [Suspect]
     Active Substance: VENETOCLAX
     Indication: B-CELL SMALL LYMPHOCYTIC LYMPHOMA
     Dosage: VENCLEXTA STARTING PACK
     Route: 048
     Dates: start: 20191029

REACTIONS (11)
  - Dyspnoea [Unknown]
  - Spleen atrophy [Unknown]
  - Blood uric acid increased [Unknown]
  - Headache [Unknown]
  - Lymphadenopathy [Unknown]
  - Pain [Recovering/Resolving]
  - Adverse event [Unknown]
  - Hospitalisation [Unknown]
  - Pulmonary oedema [Unknown]
  - Influenza like illness [Unknown]
  - Abdominal discomfort [Unknown]

NARRATIVE: CASE EVENT DATE: 2019
